FAERS Safety Report 11783645 (Version 2)
Quarter: 2015Q4

REPORT INFORMATION
  Report Type: Spontaneous
  Country: US (occurrence: US)
  Receive Date: 20151127
  Receipt Date: 20151127
  Transmission Date: 20160305
  Serious: Yes (Disabling)
  Sender: FDA-Public Use
  Company Number: US-BAYER-2015-469554

PATIENT
  Age: 59 Year
  Sex: Female

DRUGS (3)
  1. RIOCIGUAT (GUANYLATE CYCLASE STIMULATOR) [Suspect]
     Active Substance: RIOCIGUAT
     Dosage: UNK
  2. ADCIRCA [Concomitant]
     Active Substance: TADALAFIL
     Dosage: UNK
  3. VENTAVIS [Suspect]
     Active Substance: ILOPROST
     Indication: PULMONARY ARTERIAL HYPERTENSION
     Dosage: 5 ?G, 6ID
     Route: 055
     Dates: start: 20141120

REACTIONS (3)
  - Product use issue [Unknown]
  - Nausea [Unknown]
  - Hot flush [Unknown]

NARRATIVE: CASE EVENT DATE: 20151001
